FAERS Safety Report 14941035 (Version 1)
Quarter: 2018Q2

REPORT INFORMATION
  Report Type: Spontaneous
  Country: JP (occurrence: JP)
  Receive Date: 20180525
  Receipt Date: 20180525
  Transmission Date: 20180711
  Serious: Yes (Hospitalization, Other)
  Sender: FDA-Public Use
  Company Number: JP-VIIV HEALTHCARE LIMITED-JP2018JPN089589

PATIENT
  Age: 60 Year
  Sex: Male

DRUGS (3)
  1. HEPSERA [Suspect]
     Active Substance: ADEFOVIR DIPIVOXIL
     Dosage: UNK, EVERY THREE DAYS
     Route: 048
  2. ZEFIX [Suspect]
     Active Substance: LAMIVUDINE
     Indication: CHRONIC HEPATITIS B
     Dosage: 100 MG, 1D
     Route: 048
  3. HEPSERA [Suspect]
     Active Substance: ADEFOVIR DIPIVOXIL
     Indication: CHRONIC HEPATITIS B
     Dosage: 10 MG, 1D
     Route: 048

REACTIONS (7)
  - Nephrogenic diabetes insipidus [Recovering/Resolving]
  - Pubis fracture [Recovering/Resolving]
  - Metabolic acidosis [Recovering/Resolving]
  - Fanconi syndrome acquired [Recovering/Resolving]
  - Renal impairment [Recovering/Resolving]
  - Femoral neck fracture [Recovering/Resolving]
  - Rib fracture [Recovering/Resolving]
